FAERS Safety Report 7505126-1 (Version None)
Quarter: 2011Q2

REPORT INFORMATION
  Report Type: 
  Country: None (occurrence: None)
  Receive Date: 20110526
  Receipt Date: 20110418
  Transmission Date: 20111010
  Serious: Yes (Other)
  Sender: FDA-Public Use
  Company Number: PHEH2006US11914

PATIENT
  Sex: Female
  Weight: 58.049 kg

DRUGS (9)
  1. RADIATION THERAPY [Concomitant]
  2. SIMVASTATIN [Concomitant]
     Dosage: 20 MG, QD
     Route: 048
  3. AREDIA [Suspect]
     Indication: BREAST CANCER
  4. ZOMETA [Suspect]
     Indication: METASTASES TO BONE
     Dosage: UNK, QMO
     Dates: start: 20020701, end: 20040907
  5. FEMARA [Concomitant]
     Indication: BREAST CANCER
     Dosage: 2.5 MG, QD
     Route: 048
  6. CELEXA [Concomitant]
  7. VICODIN [Concomitant]
     Indication: PAIN IN JAW
  8. TAXOTERE [Concomitant]
  9. COUMADIN [Concomitant]

REACTIONS (15)
  - BIOPSY BREAST ABNORMAL [None]
  - DEFORMITY [None]
  - HYPOPHAGIA [None]
  - PULMONARY HILUM MASS [None]
  - OSTEONECROSIS OF JAW [None]
  - DECREASED INTEREST [None]
  - EMOTIONAL DISTRESS [None]
  - PAIN IN JAW [None]
  - BREAST CANCER METASTATIC [None]
  - PAIN [None]
  - DENTAL CARIES [None]
  - BONE DISORDER [None]
  - CENTRAL NERVOUS SYSTEM LESION [None]
  - GENERAL PHYSICAL HEALTH DETERIORATION [None]
  - ANXIETY [None]
